FAERS Safety Report 21529547 (Version 3)
Quarter: 2023Q2

REPORT INFORMATION
  Report Type: Spontaneous
  Country: US (occurrence: US)
  Receive Date: 20221031
  Receipt Date: 20230524
  Transmission Date: 20230721
  Serious: Yes (Other)
  Sender: FDA-Public Use
  Company Number: US-PFIZER INC-PV202200091855

PATIENT
  Age: 43 Year
  Sex: Female

DRUGS (10)
  1. IBRANCE [Suspect]
     Active Substance: PALBOCICLIB
     Indication: Breast cancer
     Dosage: 125 MG, CYCLIC (ONCE DAILY(QD)  ON DAYS 1 THROUGH 28 DAY CYCLE)
     Route: 048
     Dates: start: 20221006, end: 2022
  2. IBRANCE [Suspect]
     Active Substance: PALBOCICLIB
     Dosage: 125 MG, CYCLIC (ONCE DAILY ON DAY 1 THRU 21 OF EACH 28 DAY CYCLE)
     Route: 048
     Dates: start: 20221010
  3. IBRANCE [Suspect]
     Active Substance: PALBOCICLIB
     Dosage: 100 MG
  4. IBRANCE [Suspect]
     Active Substance: PALBOCICLIB
     Dosage: 75 MG, CYCLIC (ON DAYS 1-21 OF 28 DAY CYCLE)
     Route: 048
     Dates: start: 20230424, end: 20230501
  5. IBRANCE [Suspect]
     Active Substance: PALBOCICLIB
     Dosage: 75 MG, CYCLIC (ON DAYS 1-21 OF 28 DAY CYCLE)
     Route: 048
     Dates: start: 20230508
  6. ANASTROZOLE [Concomitant]
     Active Substance: ANASTROZOLE
     Indication: Breast cancer
     Dosage: 1 MG
  7. DOCUSATE [Concomitant]
     Active Substance: DOCUSATE
     Indication: Constipation
     Dosage: UNK
  8. LUPRON DEPOT [Concomitant]
     Active Substance: LEUPROLIDE ACETATE
     Dosage: 11.25 MG INJ/3 MTH KIT
  9. FIBER [Concomitant]
     Dosage: 625 MG
  10. STOOL SOFTENER (DOCUSATE) [Concomitant]
     Active Substance: DOCUSATE
     Dosage: UNK

REACTIONS (5)
  - Neutropenia [Recovered/Resolved]
  - Hysterectomy [Recovered/Resolved]
  - Full blood count abnormal [Recovering/Resolving]
  - Pain [Recovering/Resolving]
  - Nausea [Recovering/Resolving]

NARRATIVE: CASE EVENT DATE: 20220101
